FAERS Safety Report 5483387-0 (Version None)
Quarter: 2007Q4

REPORT INFORMATION
  Report Type: 
  Country: None (occurrence: None)
  Receive Date: 20071009
  Receipt Date: 20071009
  Transmission Date: 20080405
  Serious: Yes (Death)
  Sender: FDA-Public Use
  Company Number: None

PATIENT
  Age: 61 Year
  Sex: Female
  Weight: 76.2043 kg

DRUGS (2)
  1. DULOXETINE [Suspect]
     Indication: DEPRESSION
     Dosage: 1-2 WKS PRIOR TO DEATH
  2. PROPOXEPHINE [Suspect]
     Indication: PAIN
     Dosage: YEARS

REACTIONS (1)
  - DRUG INTERACTION [None]
